FAERS Safety Report 9407663 (Version 2)
Quarter: 2013Q3

REPORT INFORMATION
  Report Type: Spontaneous
  Country: US (occurrence: US)
  Receive Date: 20130718
  Receipt Date: 20130730
  Transmission Date: 20140515
  Serious: Yes (Other)
  Sender: FDA-Public Use
  Company Number: US-PFIZER INC-2013206332

PATIENT
  Age: 16 Year
  Sex: Female
  Weight: 58.96 kg

DRUGS (3)
  1. EPIPEN [Suspect]
     Indication: FOOD ALLERGY
     Dosage: 0.6 MG, AS NEEDED
     Route: 030
     Dates: start: 20130709, end: 20130709
  2. BUSPAR [Concomitant]
     Dosage: UNK
     Route: 048
  3. ZOLOFT [Concomitant]
     Dosage: UNK
     Route: 048

REACTIONS (1)
  - Drug effect delayed [Recovered/Resolved]
